FAERS Safety Report 8829590 (Version 1)
Quarter: 2012Q4

REPORT INFORMATION
  Report Type: Spontaneous
  Country: US (occurrence: None)
  Receive Date: 20121005
  Receipt Date: 20121005
  Transmission Date: 20130627
  Serious: No
  Sender: FDA-Public Use
  Company Number: None

PATIENT
  Age: 56 Year
  Sex: Male

DRUGS (4)
  1. EGRIFTA [Suspect]
     Indication: LIPODYSTROPHY
     Route: 058
     Dates: start: 201111, end: 201202
  2. HYDROCHLOROTHIAZIDE [Concomitant]
  3. PEPCID [Concomitant]
  4. HYDROCORTISONE SUPP [Concomitant]

REACTIONS (4)
  - Arthralgia [None]
  - Myalgia [None]
  - Injection site rash [None]
  - Injection site erythema [None]
